FAERS Safety Report 17585230 (Version 1)
Quarter: 2020Q1

REPORT INFORMATION
  Report Type: Spontaneous
  Country: US (occurrence: US)
  Receive Date: 20200326
  Receipt Date: 20200326
  Transmission Date: 20200409
  Serious: Yes (Hospitalization)
  Sender: FDA-Public Use
  Company Number: None

PATIENT
  Sex: Female

DRUGS (10)
  1. CLONIDINE. [Concomitant]
     Active Substance: CLONIDINE
  2. VITAMIN D [Concomitant]
     Active Substance: VITAMIN D NOS
  3. FLUTICASONE. [Concomitant]
     Active Substance: FLUTICASONE
  4. PREDNISONE. [Concomitant]
     Active Substance: PREDNISONE
  5. HYDROXYCHLOR TAB [Concomitant]
  6. MYCOPHENOLATE [Concomitant]
     Active Substance: MYCOPHENOLIC ACID
  7. RAYALDEE [Concomitant]
     Active Substance: CALCIFEDIOL
  8. VALSARTAN. [Concomitant]
     Active Substance: VALSARTAN
  9. SODIUM BICAR TAB [Concomitant]
  10. BENLYSTA [Suspect]
     Active Substance: BELIMUMAB
     Indication: SYSTEMIC LUPUS ERYTHEMATOSUS
     Dosage: ?          OTHER FREQUENCY:WEEKLY;?
     Route: 058
     Dates: start: 20200107

REACTIONS (2)
  - Therapy cessation [None]
  - Ill-defined disorder [None]
